FAERS Safety Report 15595527 (Version 4)
Quarter: 2019Q2

REPORT INFORMATION
  Report Type: Spontaneous
  Country: US (occurrence: US)
  Receive Date: 20181107
  Receipt Date: 20190510
  Transmission Date: 20190711
  Serious: No
  Sender: FDA-Public Use
  Company Number: US-BRISTOL-MYERS SQUIBB COMPANY-BMS-2018-101269

PATIENT
  Sex: Female
  Weight: 139.23 kg

DRUGS (1)
  1. ORENCIA [Suspect]
     Active Substance: ABATACEPT
     Indication: RHEUMATOID ARTHRITIS
     Dosage: 125 MILLIGRAM, QWK
     Route: 058
     Dates: start: 20180925

REACTIONS (9)
  - Contusion [Unknown]
  - Mass [Unknown]
  - Nausea [Unknown]
  - Gait inability [Unknown]
  - Device issue [Unknown]
  - Bronchitis [Recovering/Resolving]
  - Pain in extremity [Unknown]
  - Pain [Unknown]
  - Injection site haemorrhage [Unknown]
